FAERS Safety Report 5429403-3 (Version None)
Quarter: 2007Q3

REPORT INFORMATION
  Report Type: 
  Country: None (occurrence: None)
  Receive Date: 20070824
  Receipt Date: 20070813
  Transmission Date: 20080115
  Serious: Yes (Hospitalization)
  Sender: FDA-Public Use
  Company Number: 2006-03325

PATIENT
  Age: 56 Year
  Sex: Female
  Weight: 47 kg

DRUGS (9)
  1. VELCADE [Suspect]
     Indication: T-CELL LYMPHOMA
     Dosage: 2.40 MG, INTRAVENOUS
     Route: 042
     Dates: start: 20061201, end: 20061219
  2. DOXORUBICIN HCL [Suspect]
     Indication: T-CELL LYMPHOMA
     Dosage: 118.50 MG, INTRAVENOUS
     Route: 042
     Dates: start: 20061201, end: 20061215
  3. CYCLOPHOSPHAMIDE [Suspect]
     Indication: T-CELL LYMPHOMA
     Dosage: 1896 MG, INTRAVENOUS
     Route: 042
     Dates: start: 20061202, end: 20061215
  4. ELDISINE [Suspect]
     Indication: T-CELL LYMPHOMA
     Dosage: 3.20 MG, INTRAVENOUS
     Route: 042
     Dates: start: 20061201, end: 20061219
  5. BLEOMYCIN [Suspect]
     Indication: T-CELL LYMPHOMA
     Dosage: 10.00 MG, INTRAVENOUS
     Route: 042
     Dates: start: 20061201, end: 20061219
  6. METHOTREXATE [Suspect]
     Indication: T-CELL LYMPHOMA
     Dosage: 15.00 MG, INTRATHECAL
     Route: 037
     Dates: start: 20061202, end: 20061219
  7. MESNA [Concomitant]
  8. GRANOCYTE [Concomitant]
  9. VALACYCLOVIR HCL [Concomitant]

REACTIONS (4)
  - GASTROINTESTINAL MUCOSAL DISORDER [None]
  - HIATUS HERNIA [None]
  - OESOPHAGEAL CANDIDIASIS [None]
  - PANCYTOPENIA [None]
